FAERS Safety Report 13641959 (Version 1)
Quarter: 2017Q2

REPORT INFORMATION
  Report Type: Spontaneous
  Country: US (occurrence: US)
  Receive Date: 20170612
  Receipt Date: 20170612
  Transmission Date: 20170830
  Serious: Yes (Other)
  Sender: FDA-Public Use
  Company Number: US-ABBVIE-17P-163-1996368-00

PATIENT
  Sex: Female
  Weight: 79 kg

DRUGS (1)
  1. SYNTHROID [Suspect]
     Active Substance: LEVOTHYROXINE SODIUM
     Indication: THYROIDECTOMY
     Dosage: EVERY MORNING
     Route: 048

REACTIONS (6)
  - Mood swings [Unknown]
  - Nervousness [Unknown]
  - Neoplasm [Unknown]
  - Feeling cold [Unknown]
  - Decreased appetite [Unknown]
  - Hyperhidrosis [Unknown]
